FAERS Safety Report 4656140-5 (Version None)
Quarter: 2005Q2

REPORT INFORMATION
  Report Type: 
  Country: None (occurrence: None)
  Receive Date: 20050505
  Receipt Date: 20050419
  Transmission Date: 20051028
  Serious: Yes (Hospitalization)
  Sender: FDA-Public Use
  Company Number: DE-2005-005802

PATIENT
  Age: 66 Year
  Sex: Female
  Weight: 60 kg

DRUGS (11)
  1. CAMPATH [Suspect]
     Indication: CHRONIC LYMPHOCYTIC LEUKAEMIA
     Dosage: 3 MG, SUBCUTANEOUS
     Route: 058
     Dates: start: 20041220, end: 20041220
  2. CAMPATH [Suspect]
     Dosage: 10 MG, SUBCUTANEOUS
     Route: 058
     Dates: start: 20041221, end: 20041221
  3. CAMPATH [Suspect]
     Dosage: 20 MG, SUBCUTANEOUS
     Route: 058
     Dates: start: 20041222, end: 20041222
  4. CAMPATH [Suspect]
     Dosage: 30 MG, SUBCUTANEOUS
     Route: 058
     Dates: start: 20041223, end: 20041223
  5. CAMPATH [Suspect]
     Dosage: 30 MG, 3X/ WEEK
     Dates: start: 20041227, end: 20050124
  6. CAMPATH [Suspect]
     Dosage: 30 MG, 3X/ WEEK
     Dates: start: 20050131, end: 20050223
  7. PARACETAMOL [Concomitant]
  8. ANTI-HISTAMINE TAB [Concomitant]
  9. CO-TRIMOXAZOLE (CO-TRIMOXAZOLE) [Concomitant]
  10. VALACYCLOVIR HCL [Concomitant]
  11. PEGFILGRASTIM (PEGFILGRASTIM) [Concomitant]

REACTIONS (12)
  - ANOREXIA [None]
  - ASCITES [None]
  - CYTOLOGY ABNORMAL [None]
  - HAEMOGLOBIN DECREASED [None]
  - INFLAMMATION [None]
  - LEUKOPENIA [None]
  - LYMPHADENOPATHY [None]
  - PLEURAL EFFUSION [None]
  - POLYSEROSITIS [None]
  - PROTEIN TOTAL DECREASED [None]
  - SPLENOMEGALY [None]
  - THROMBOCYTOPENIA [None]
